FAERS Safety Report 13550154 (Version 1)
Quarter: 2017Q2

REPORT INFORMATION
  Report Type: Spontaneous
  Country: US (occurrence: US)
  Receive Date: 20170516
  Receipt Date: 20170516
  Transmission Date: 20170830
  Serious: Yes (Hospitalization, Other)
  Sender: FDA-Public Use
  Company Number: US-TEVA-768318USA

PATIENT
  Sex: Female

DRUGS (2)
  1. AMPHETAMINE W/DEXTROAMPHETAMINE [Suspect]
     Active Substance: AMPHETAMINE SULFATE\DEXTROAMPHETAMINE
     Indication: ATTENTION DEFICIT/HYPERACTIVITY DISORDER
     Route: 065
     Dates: start: 2013
  2. AMPHETAMINE W/DEXTROAMPHETAMINE [Suspect]
     Active Substance: AMPHETAMINE SULFATE\DEXTROAMPHETAMINE
     Route: 065
     Dates: start: 2013

REACTIONS (21)
  - Antisocial behaviour [Unknown]
  - Loss of personal independence in daily activities [Unknown]
  - Depression [Unknown]
  - Mania [Unknown]
  - Fear [Unknown]
  - Disturbance in attention [Unknown]
  - Irritability [Unknown]
  - Agitation [Unknown]
  - Aggression [Unknown]
  - Memory impairment [Unknown]
  - Hospitalisation [Unknown]
  - Paralysis [Unknown]
  - Hostility [Unknown]
  - Personal relationship issue [Unknown]
  - Abnormal behaviour [Unknown]
  - Restlessness [Unknown]
  - Feeling abnormal [Unknown]
  - Product substitution issue [Unknown]
  - Drug ineffective [Unknown]
  - Crying [Unknown]
  - Logorrhoea [Unknown]

NARRATIVE: CASE EVENT DATE: 20170428
